FAERS Safety Report 8484525 (Version 5)
Quarter: 2013Q2

REPORT INFORMATION
  Report Type: Spontaneous
  Country: US (occurrence: US)
  Receive Date: 20120330
  Receipt Date: 20130620
  Transmission Date: 20140414
  Serious: Yes (Other)
  Sender: FDA-Public Use
  Company Number: US-PFIZER INC-2012078327

PATIENT
  Sex: Female

DRUGS (5)
  1. TOVIAZ [Suspect]
     Dosage: UNK
  2. DETROL LA [Suspect]
     Dosage: 4 MG, DAILY
     Dates: end: 2013
  3. DETROL [Suspect]
     Dosage: 2 MG, UNK
  4. VESICARE [Suspect]
     Dosage: UNK
  5. OXYBUTYNIN HYDROCHLORIDE, S- [Suspect]
     Dosage: UNK

REACTIONS (17)
  - Confusional state [Unknown]
  - Dehydration [Unknown]
  - Chest pain [Not Recovered/Not Resolved]
  - Haemorrhoids [Unknown]
  - Dry mouth [Unknown]
  - Constipation [Unknown]
  - Abdominal pain upper [Unknown]
  - Dry skin [Unknown]
  - Oral pain [Unknown]
  - Oropharyngeal pain [Unknown]
  - Flatulence [Recovering/Resolving]
  - Vision blurred [Unknown]
  - Abdominal distension [Unknown]
  - Eructation [Unknown]
  - Oropharyngeal pain [Not Recovered/Not Resolved]
  - Abdominal pain upper [Not Recovered/Not Resolved]
  - Gastrooesophageal reflux disease [Not Recovered/Not Resolved]
